FAERS Safety Report 4392063-7 (Version None)
Quarter: 2004Q3

REPORT INFORMATION
  Report Type: 
  Country: None (occurrence: None)
  Receive Date: 20040708
  Receipt Date: 20040602
  Transmission Date: 20050211
  Serious: Yes (Other)
  Sender: FDA-Public Use
  Company Number: PHBS2004DE07341

PATIENT
  Age: 67 Year
  Sex: Male

DRUGS (4)
  1. DEFEROXAMINE [Suspect]
     Indication: BLOOD IRON INCREASED
     Dosage: 1-2 G/D
     Route: 058
     Dates: start: 19990801, end: 20010201
  2. DEFEROXAMINE [Suspect]
     Dosage: UNK, PRN
     Route: 058
     Dates: end: 20021101
  3. RED BLOOD CELLS [Concomitant]
  4. PLATELETS [Concomitant]

REACTIONS (7)
  - ABDOMINAL WALL ABSCESS [None]
  - MACULOPATHY [None]
  - RENAL IMPAIRMENT [None]
  - RETINAL PIGMENTATION [None]
  - RETINITIS PIGMENTOSA [None]
  - RETINOGRAM ABNORMAL [None]
  - VISUAL DISTURBANCE [None]
